FAERS Safety Report 13908019 (Version 1)
Quarter: 2017Q3

REPORT INFORMATION
  Report Type: Spontaneous
  Country: US (occurrence: US)
  Receive Date: 20170825
  Receipt Date: 20170825
  Transmission Date: 20171127
  Serious: No
  Sender: FDA-Public Use
  Company Number: US-ROCHE-1113578

PATIENT
  Sex: Female
  Weight: 69.69 kg

DRUGS (5)
  1. PARLODEL [Concomitant]
     Active Substance: BROMOCRIPTINE MESYLATE
     Route: 065
  2. SYNTHROID [Concomitant]
     Active Substance: LEVOTHYROXINE SODIUM
     Route: 065
  3. DDAVP [Concomitant]
     Active Substance: DESMOPRESSIN ACETATE
     Route: 065
  4. NUTROPIN AQ [Suspect]
     Active Substance: SOMATROPIN
     Indication: HYPOPITUITARISM
     Dosage: (7 INJECTION PER WEEK)
     Route: 058
     Dates: start: 20000525
  5. CORTEF [Concomitant]
     Active Substance: HYDROCORTISONE
     Dosage: 20 MG IN MORNING AND 10 MG IN EVENING
     Route: 065

REACTIONS (2)
  - Fatigue [Unknown]
  - Depression [Recovering/Resolving]
